FAERS Safety Report 8266944-8 (Version None)
Quarter: 2012Q2

REPORT INFORMATION
  Report Type: 
  Country: None (occurrence: None)
  Receive Date: 20120404
  Receipt Date: 20120404
  Transmission Date: 20120825
  Serious: Yes (Hospitalization)
  Sender: FDA-Public Use
  Company Number: None

PATIENT
  Age: 85 Year
  Sex: Male
  Weight: 81.8 kg

DRUGS (12)
  1. ASPIRIN [Suspect]
     Indication: ATRIAL FIBRILLATION
     Dosage: 81MG QAM PO CHRONIC
     Route: 048
  2. WARFARIN SODIUM [Suspect]
     Indication: ATRIAL FIBRILLATION
     Dosage: 2MG QHS PO CHRONIC
     Route: 048
  3. DOCUSATE [Concomitant]
  4. POTASSIUM CHLORIDE [Concomitant]
  5. FENOFIBRATE [Concomitant]
  6. LASIX [Concomitant]
  7. M.V.I. [Concomitant]
  8. FAMOTIDINE [Concomitant]
  9. LIPITOR [Concomitant]
  10. NIACIN [Concomitant]
  11. METOPROLOL TARTRATE [Concomitant]
  12. ISOSORBIDE MON. [Concomitant]

REACTIONS (3)
  - GASTROINTESTINAL HAEMORRHAGE [None]
  - GASTROINTESTINAL ARTERIOVENOUS MALFORMATION [None]
  - CONDITION AGGRAVATED [None]
